FAERS Safety Report 8027439-X (Version None)
Quarter: 2011Q4

REPORT INFORMATION
  Report Type: 
  Country: None (occurrence: None)
  Receive Date: 20111130
  Receipt Date: 20110808
  Transmission Date: 20120403
  Serious: Yes (Hospitalization, Other)
  Sender: FDA-Public Use
  Company Number: US201108002336

PATIENT
  Age: 45 Year
  Sex: Male
  Weight: 82.5 kg

DRUGS (5)
  1. FEXOFENADINE HCL [Concomitant]
  2. METFORMIN  ER (METFORMIN HYDROCHLORIDE) [Concomitant]
  3. BYETTA [Suspect]
     Indication: TYPE 2 DIABETES MELLITUS
     Dosage: 10 UG, QD
  4. GABAPENTIN [Concomitant]
  5. GLYBURIDE [Concomitant]

REACTIONS (1)
  - PANCREATITIS ACUTE [None]
